FAERS Safety Report 6041535-8 (Version None)
Quarter: 2009Q1

REPORT INFORMATION
  Report Type: 
  Country: None (occurrence: None)
  Receive Date: 20090116
  Receipt Date: 20090109
  Transmission Date: 20090719
  Serious: Yes (Hospitalization)
  Sender: FDA-Public Use
  Company Number: A0716225A

PATIENT
  Age: 47 Year
  Sex: Male
  Weight: 103.6 kg

DRUGS (4)
  1. AVANDIA [Suspect]
     Dosage: 8MG PER DAY
     Route: 048
     Dates: start: 19990101, end: 20070101
  2. GLUCOPHAGE [Concomitant]
     Dates: end: 20050101
  3. METFORMIN [Concomitant]
     Dates: end: 20050101
  4. VYTORIN [Concomitant]
     Dates: start: 20020101

REACTIONS (2)
  - CARDIAC FAILURE CONGESTIVE [None]
  - PULMONARY HYPERTENSION [None]
